FAERS Safety Report 19750309 (Version 1)
Quarter: 2021Q3

REPORT INFORMATION
  Report Type: Spontaneous
  Country: IN (occurrence: IN)
  Receive Date: 20210826
  Receipt Date: 20210826
  Transmission Date: 20211014
  Serious: Yes (Death, Hospitalization)
  Sender: FDA-Public Use
  Company Number: IN-MYLANLABS-2021M1055630

PATIENT
  Age: 8 Year
  Sex: Female

DRUGS (9)
  1. MEROPENEM. [Concomitant]
     Active Substance: MEROPENEM
     Indication: HYPERSENSITIVITY MYOCARDITIS
     Dosage: UNK
     Route: 065
  2. NORADRENALINE                      /00127501/ [Suspect]
     Active Substance: NOREPINEPHRINE
     Indication: HYPOVOLAEMIC SHOCK
     Dosage: UNK, INFUSION
  3. MILRINONE [Suspect]
     Active Substance: MILRINONE
     Indication: HYPOVOLAEMIC SHOCK
     Dosage: UNK, INFUSION
  4. IMMUNOGLOBULIN                     /07494701/ [Concomitant]
     Active Substance: IMMUNE GLOBULIN NOS
     Indication: HYPERSENSITIVITY MYOCARDITIS
     Dosage: 0.5 G/KG, INFUSION
  5. VANCOMYCIN [Concomitant]
     Active Substance: VANCOMYCIN
     Indication: HYPERSENSITIVITY MYOCARDITIS
     Dosage: UNK
     Route: 065
  6. STREPTOMYCIN [Concomitant]
     Active Substance: STREPTOMYCIN SULFATE
     Indication: TUBERCULOSIS GASTROINTESTINAL
     Dosage: UNK
     Route: 065
  7. EPINEPHRINE. [Suspect]
     Active Substance: EPINEPHRINE
     Indication: HYPOVOLAEMIC SHOCK
     Dosage: INFUSION
  8. DOBUTAMINE [Suspect]
     Active Substance: DOBUTAMINE HYDROCHLORIDE
     Indication: HYPOVOLAEMIC SHOCK
     Dosage: UNK, INFUSION
  9. DOPAMINE [Suspect]
     Active Substance: DOPAMINE HYDROCHLORIDE
     Indication: HYPOVOLAEMIC SHOCK
     Dosage: UNK, INFUSION

REACTIONS (1)
  - Drug ineffective [Fatal]
